FAERS Safety Report 12574968 (Version 1)
Quarter: 2016Q3

REPORT INFORMATION
  Report Type: Spontaneous
  Country: US (occurrence: US)
  Receive Date: 20160720
  Receipt Date: 20160720
  Transmission Date: 20161109
  Serious: No
  Sender: FDA-Public Use
  Company Number: US-ASTELLAS-2015US038175

PATIENT
  Sex: Female

DRUGS (2)
  1. VESICARE [Suspect]
     Active Substance: SOLIFENACIN SUCCINATE
     Indication: URINARY STRAINING
  2. VESICARE [Suspect]
     Active Substance: SOLIFENACIN SUCCINATE
     Indication: URINE FLOW DECREASED
     Route: 048

REACTIONS (4)
  - Dry mouth [Recovered/Resolved]
  - Constipation [Unknown]
  - Urine flow decreased [Unknown]
  - Off label use [Unknown]
